FAERS Safety Report 8848557 (Version 3)
Quarter: 2013Q4

REPORT INFORMATION
  Report Type: Spontaneous
  Country: US (occurrence: US)
  Receive Date: 20121018
  Receipt Date: 20131108
  Transmission Date: 20140711
  Serious: Yes (Hospitalization)
  Sender: FDA-Public Use
  Company Number: US-GLAXOSMITHKLINE-A0997726A

PATIENT
  Age: 78 Year
  Sex: Female

DRUGS (15)
  1. FLOVENT [Suspect]
     Indication: ASTHMA
     Dosage: 2PUFF TWICE PER DAY
     Route: 055
     Dates: start: 20121012
  2. ACEBUTOLOL [Concomitant]
  3. PROAIR HFA [Concomitant]
  4. VITAMINS [Concomitant]
  5. PLAVIX [Concomitant]
  6. COLACE [Concomitant]
  7. FAMOTIDINE [Concomitant]
  8. FUROSEMIDE [Concomitant]
  9. ATIVAN [Concomitant]
  10. LISINOPRIL [Concomitant]
  11. PERCOCET [Concomitant]
  12. PROTONIX [Concomitant]
  13. DILANTIN [Concomitant]
  14. LYRICA [Concomitant]
  15. SIMVASTATIN [Concomitant]

REACTIONS (9)
  - Fall [Unknown]
  - Head injury [Unknown]
  - Malaise [Unknown]
  - Bronchitis [Not Recovered/Not Resolved]
  - Dysphonia [Not Recovered/Not Resolved]
  - Chest discomfort [Not Recovered/Not Resolved]
  - Fatigue [Not Recovered/Not Resolved]
  - Sinus disorder [Not Recovered/Not Resolved]
  - Eye disorder [Not Recovered/Not Resolved]
